FAERS Safety Report 5520756-4 (Version None)
Quarter: 2007Q4

REPORT INFORMATION
  Report Type: 
  Country: None (occurrence: None)
  Receive Date: 20071115
  Receipt Date: 20071115
  Transmission Date: 20080405
  Serious: Yes (Death)
  Sender: FDA-Public Use
  Company Number: None

PATIENT
  Age: 91 Year
  Sex: Female
  Weight: 48 kg

DRUGS (9)
  1. ARIXTRA [Suspect]
     Indication: PULMONARY EMBOLISM
     Dosage: 7.5 MG DAILY SQ
     Route: 058
     Dates: start: 20071108, end: 20071112
  2. ASPIRIN [Concomitant]
  3. ADVAIR DISKUS 100/50 [Concomitant]
  4. METOPROLOL [Concomitant]
  5. LEXAPRO [Concomitant]
  6. SPIRIVA [Concomitant]
  7. CALCIUM/VITAMIN D [Concomitant]
  8. PROTONIX [Concomitant]
  9. LISINOPRIL [Concomitant]

REACTIONS (1)
  - CEREBRAL HAEMORRHAGE [None]
